FAERS Safety Report 8105067-5 (Version None)
Quarter: 2012Q1

REPORT INFORMATION
  Report Type: 
  Country: None (occurrence: None)
  Receive Date: 20120201
  Receipt Date: 20120123
  Transmission Date: 20120608
  Serious: Yes (Hospitalization)
  Sender: FDA-Public Use
  Company Number: US-BAYER-2011-049634

PATIENT
  Age: 36 Year
  Sex: Female
  Weight: 112.2 kg

DRUGS (20)
  1. PHENTERMINE [Concomitant]
     Indication: WEIGHT DECREASED
     Dosage: UNK
     Dates: start: 20100125, end: 20100214
  2. DROSPIRENONE AND ETHINYL ESTRADIOL [Suspect]
     Indication: ORAL CONTRACEPTION
     Dosage: UNK
     Dates: start: 20080801, end: 20100201
  3. FUROSEMIDE [Concomitant]
  4. ZETIA [Concomitant]
     Dosage: 10 MG, QD
  5. TOPAMAX [Concomitant]
     Indication: MIGRAINE
     Dosage: UNK
     Dates: start: 20090901
  6. AZITHROMYCIN [Concomitant]
  7. LEVOTHYROXINE SODIUM [Concomitant]
     Indication: HYPOTHYROIDISM
     Dosage: UNK
     Dates: start: 20090929
  8. FIORICET [Concomitant]
     Indication: MIGRAINE
     Dosage: UNK
     Dates: start: 20090401
  9. YASMIN [Suspect]
     Indication: ORAL CONTRACEPTION
     Dosage: UNK
     Dates: start: 20060701, end: 20080801
  10. ALPRAZOLAM [Concomitant]
     Dosage: UNK
     Dates: start: 20040101
  11. PLAVIX [Concomitant]
  12. PRILOSEC [Concomitant]
     Dosage: 20 MG, QD
  13. NITROGLYCERIN [Concomitant]
  14. POTASSIUM CHLORIDE [Concomitant]
  15. LISINOPRIL [Concomitant]
     Indication: HYPERTENSION
     Dosage: UNK
     Dates: start: 20070504
  16. WELLBUTRIN XL [Concomitant]
     Indication: DEPRESSION
     Dosage: UNK
     Dates: start: 20060201
  17. LIPITOR [Concomitant]
     Dosage: UNK
     Dates: start: 20100201
  18. THYROID TAB [Concomitant]
     Dosage: UNK
     Dates: start: 20090624, end: 20091101
  19. CARVEDILOL [Concomitant]
     Dosage: UNK
     Dates: start: 20100222
  20. SIMVASTATIN [Concomitant]
     Dosage: UNK
     Dates: start: 20100215

REACTIONS (5)
  - MYOCARDIAL INFARCTION [None]
  - PAIN [None]
  - ANXIETY [None]
  - DEEP VEIN THROMBOSIS [None]
  - EMOTIONAL DISTRESS [None]
